FAERS Safety Report 6080142-8 (Version None)
Quarter: 2009Q1

REPORT INFORMATION
  Report Type: 
  Country: None (occurrence: None)
  Receive Date: 20090217
  Receipt Date: 20090205
  Transmission Date: 20090719
  Serious: Yes (Disabling)
  Sender: FDA-Public Use
  Company Number: AU-PFIZER INC-2008098749

PATIENT

DRUGS (8)
  1. CHAMPIX [Suspect]
     Indication: SMOKING CESSATION THERAPY
     Dosage: 1 MG, 2X/DAY
     Route: 048
     Dates: start: 20080629, end: 20080826
  2. ACETYLSALICYLIC ACID [Concomitant]
     Indication: CARDIAC DISORDER
     Dosage: 100 MG, 1X/DAY
     Route: 048
     Dates: start: 20070307
  3. OLANZAPINE [Concomitant]
     Indication: AFFECTIVE DISORDER
     Dosage: 10 MG, 2X/DAY
     Route: 048
     Dates: start: 20080321
  4. VASOCARDOL [Concomitant]
     Indication: BLOOD PRESSURE INCREASED
     Dosage: 180 MG, 1X/DAY
     Route: 048
     Dates: start: 20070326
  5. EFFEXOR XR [Concomitant]
     Indication: DEPRESSION
     Dosage: 375 MG, 1X/DAY
     Route: 048
     Dates: start: 20080331
  6. LIPITOR [Concomitant]
     Indication: LIPID METABOLISM DISORDER
     Dosage: 80 MG, 1X/DAY
     Route: 048
     Dates: start: 20070326
  7. EZETROL [Concomitant]
     Indication: LIPID METABOLISM DISORDER
     Dosage: 10 MG, 1X/DAY
     Route: 048
     Dates: start: 20070813
  8. OMEPRAZOLE [Concomitant]
     Indication: REFLUX OESOPHAGITIS
     Dosage: 20 MG, 1X/DAY
     Route: 048

REACTIONS (6)
  - AGGRESSION [None]
  - ANOREXIA [None]
  - DEPRESSION [None]
  - INSOMNIA [None]
  - IRRITABILITY [None]
  - LETHARGY [None]
